FAERS Safety Report 19569365 (Version 2)
Quarter: 2021Q3

REPORT INFORMATION
  Report Type: Spontaneous
  Country: JP (occurrence: JP)
  Receive Date: 20210716
  Receipt Date: 20210719
  Transmission Date: 20211014
  Serious: Yes (Other)
  Sender: FDA-Public Use
  Company Number: JP-ELI_LILLY_AND_COMPANY-JP202107002697

PATIENT

DRUGS (2)
  1. VEKLURY [Concomitant]
     Active Substance: REMDESIVIR
     Indication: COVID-19
     Dosage: UNK
     Dates: start: 20210628, end: 20210701
  2. OLUMIANT [Suspect]
     Active Substance: BARICITINIB
     Indication: COVID-19
     Dosage: UNK
     Route: 065
     Dates: start: 20210628, end: 20210702

REACTIONS (1)
  - COVID-19 [Not Recovered/Not Resolved]
